FAERS Safety Report 26212803 (Version 1)
Quarter: 2025Q4

REPORT INFORMATION
  Report Type: Spontaneous
  Country: US (occurrence: US)
  Receive Date: 20251230
  Receipt Date: 20251230
  Transmission Date: 20260117
  Serious: Yes (Death, Other)
  Sender: LEO PHARM
  Company Number: US-LEO Pharma-385291

PATIENT
  Age: 44 Year
  Sex: Male

DRUGS (6)
  1. TACROLIMUS [Suspect]
     Active Substance: TACROLIMUS
     Indication: Dermatomyositis
  2. TACROLIMUS [Suspect]
     Active Substance: TACROLIMUS
     Indication: Interstitial lung disease
  3. METHYLPREDNISOLONE [Suspect]
     Active Substance: METHYLPREDNISOLONE
     Indication: Dermatomyositis
  4. METHYLPREDNISOLONE [Suspect]
     Active Substance: METHYLPREDNISOLONE
     Indication: Interstitial lung disease
  5. HEPARIN [Suspect]
     Active Substance: HEPARIN SODIUM
     Indication: Dermatomyositis
  6. HEPARIN [Suspect]
     Active Substance: HEPARIN SODIUM
     Indication: Interstitial lung disease

REACTIONS (4)
  - Off label use [Unknown]
  - Multiple organ dysfunction syndrome [Fatal]
  - Shock haemorrhagic [Unknown]
  - Product use in unapproved indication [Unknown]
